FAERS Safety Report 16706338 (Version 1)
Quarter: 2019Q3

REPORT INFORMATION
  Report Type: Spontaneous
  Country: CN (occurrence: CN)
  Receive Date: 20190815
  Receipt Date: 20190815
  Transmission Date: 20191004
  Serious: Yes (Other)
  Sender: FDA-Public Use
  Company Number: CN-PFIZER INC-2019345905

PATIENT
  Age: 54 Year
  Sex: Male
  Weight: 60 kg

DRUGS (1)
  1. VORICONAZOLE. [Suspect]
     Active Substance: VORICONAZOLE
     Indication: THERAPEUTIC PROCEDURE
     Dosage: 0.4 DF, 2X/DAY
     Route: 041
     Dates: start: 20190711, end: 20190711

REACTIONS (4)
  - Psychomotor hyperactivity [Recovering/Resolving]
  - Disorganised speech [Recovering/Resolving]
  - Dyskinesia [Recovering/Resolving]
  - Restlessness [Recovering/Resolving]

NARRATIVE: CASE EVENT DATE: 20190711
